FAERS Safety Report 14207517 (Version 1)
Quarter: 2017Q4

REPORT INFORMATION
  Report Type: Spontaneous
  Country: US (occurrence: None)
  Receive Date: 20171120
  Receipt Date: 20171120
  Transmission Date: 20180321
  Serious: No
  Sender: FDA-Public Use
  Company Number: None

PATIENT
  Sex: Female
  Weight: 86.18 kg

DRUGS (2)
  1. OTREXUP [Suspect]
     Active Substance: METHOTREXATE
     Indication: PRODUCT USED FOR UNKNOWN INDICATION
     Route: 058
     Dates: start: 201706
  2. OTREXUP [Suspect]
     Active Substance: METHOTREXATE
     Indication: TORTICOLLIS
     Route: 058
     Dates: start: 201706

REACTIONS (2)
  - Condition aggravated [None]
  - Fibromyalgia [None]
